FAERS Safety Report 4717590-1 (Version None)
Quarter: 2005Q3

REPORT INFORMATION
  Report Type: 
  Country: None (occurrence: None)
  Receive Date: 20050712
  Receipt Date: 20050513
  Transmission Date: 20060218
  Serious: No
  Sender: FDA-Public Use
  Company Number: 2005S1000096

PATIENT
  Age: 73 Year
  Sex: Female

DRUGS (3)
  1. CUBICIN [Suspect]
     Indication: ARTHRITIS INFECTIVE
     Dosage: Q24H;IV
     Route: 042
     Dates: start: 20050422, end: 20050519
  2. CUBICIN [Suspect]
     Indication: MEDICAL DEVICE COMPLICATION
     Dosage: Q24H;IV
     Route: 042
     Dates: start: 20050422, end: 20050519
  3. HYDROCODONE [Concomitant]

REACTIONS (2)
  - AGITATION [None]
  - ASTHENIA [None]
